FAERS Safety Report 21792961 (Version 1)
Quarter: 2022Q4

REPORT INFORMATION
  Report Type: Spontaneous
  Country: FR (occurrence: FR)
  Receive Date: 20221229
  Receipt Date: 20221229
  Transmission Date: 20230113
  Serious: Yes (Other)
  Sender: FDA-Public Use
  Company Number: FR-ALKEM LABORATORIES LIMITED-FR-ALKEM-2022-14179

PATIENT
  Age: 40 Month
  Sex: Female
  Weight: 4.41 kg

DRUGS (5)
  1. SIROLIMUS [Suspect]
     Active Substance: SIROLIMUS
     Indication: Hyperinsulinism
     Dosage: UNK, QD (INITIAL DOSE OF 0.5-1 MG/SQ.M OF BODY SURFACE AREA PER DAY), SYRUP IN A CONCENTRATION OF 1
     Route: 065
  2. SIROLIMUS [Suspect]
     Active Substance: SIROLIMUS
     Dosage: 5.9 MILLIGRAM/SQ. METER, QD (MAXIMAL DOSAGE 5.9 MG/SQ.M. D, TROUGH LEVEL- 3-11.8 (6.7) MICROGRAM PER
     Route: 065
  3. DIAZOXIDE [Concomitant]
     Active Substance: DIAZOXIDE
     Indication: Hyperinsulinism
     Dosage: 6 MILLIGRAM/KILOGRAM, QD
     Route: 048
  4. OCTREOTIDE [Concomitant]
     Active Substance: OCTREOTIDE
     Indication: Hyperinsulinism
     Dosage: 66 MICROGRAM/KILOGRAM, QD
     Route: 065
  5. DEXTROSE [Concomitant]
     Active Substance: DEXTROSE
     Indication: Hyperinsulinism
     Dosage: 4.5 MILLIGRAM/KILOGRAM PER MINUTE
     Route: 065

REACTIONS (4)
  - Thrombocytopenia [Unknown]
  - Blood triglycerides increased [Unknown]
  - Stomatitis [Unknown]
  - Off label use [Unknown]
